FAERS Safety Report 7995047-2 (Version None)
Quarter: 2011Q4

REPORT INFORMATION
  Report Type: 
  Country: None (occurrence: None)
  Receive Date: 20111220
  Receipt Date: 20111213
  Transmission Date: 20120403
  Serious: Yes (Hospitalization)
  Sender: FDA-Public Use
  Company Number: FR-PFIZER INC-K201100982

PATIENT
  Age: 89 Year
  Sex: Male
  Weight: 48 kg

DRUGS (7)
  1. ALDACTONE [Concomitant]
     Dosage: UNK
     Dates: end: 20100228
  2. TAMSULOSIN HCL [Concomitant]
     Dosage: UNK
  3. RAMIPRIL [Suspect]
     Dosage: 5 MG, DAILY
     Route: 048
     Dates: end: 20100228
  4. ARIXTRA [Concomitant]
     Dosage: UNK
  5. PREDNISOLONE [Concomitant]
  6. CREON [Concomitant]
     Dosage: UNK
  7. BUMETANIDE [Concomitant]
     Dosage: UNK

REACTIONS (14)
  - CREATININE RENAL CLEARANCE DECREASED [None]
  - DIARRHOEA [None]
  - FAECALOMA [None]
  - DEHYDRATION [None]
  - CACHEXIA [None]
  - TACHYCARDIA [None]
  - ABDOMINAL PAIN [None]
  - DRY MOUTH [None]
  - SOMNOLENCE [None]
  - DEPRESSED LEVEL OF CONSCIOUSNESS [None]
  - BLOOD UREA INCREASED [None]
  - BLOOD POTASSIUM DECREASED [None]
  - HYPONATRAEMIA [None]
  - TONGUE DISCOLOURATION [None]
